FAERS Safety Report 10888419 (Version 1)
Quarter: 2015Q1

REPORT INFORMATION
  Report Type: Report from Study
  Country: NL (occurrence: NL)
  Receive Date: 20150305
  Receipt Date: 20150305
  Transmission Date: 20150721
  Serious: Yes (Hospitalization)
  Sender: FDA-Public Use
  Company Number: NL-AMGEN-NLDSL2015020026

PATIENT
  Age: 94 Year
  Sex: Male

DRUGS (1)
  1. ARANESP [Suspect]
     Active Substance: DARBEPOETIN ALFA
     Indication: PRODUCT USED FOR UNKNOWN INDICATION
     Dosage: 30 MG, Q2WK
     Route: 058

REACTIONS (2)
  - Oedema peripheral [Unknown]
  - Pruritus [Unknown]

NARRATIVE: CASE EVENT DATE: 20150226
